FAERS Safety Report 14720545 (Version 2)
Quarter: 2019Q1

REPORT INFORMATION
  Report Type: Spontaneous
  Country: DE (occurrence: DE)
  Receive Date: 20180405
  Receipt Date: 20190228
  Transmission Date: 20190417
  Serious: Yes (Other)
  Sender: FDA-Public Use
  Company Number: DE-MYLANLABS-2018M1020609

PATIENT
  Age: 19 Year
  Sex: Male

DRUGS (6)
  1. ETOPOSIDE. [Suspect]
     Active Substance: ETOPOSIDE
     Indication: ATYPICAL TERATOID/RHABDOID TUMOUR OF CNS
     Dosage: 3 UNK, CYCLE
     Route: 065
     Dates: start: 2014, end: 2014
  2. CYCLOPHOSPHAMID [Concomitant]
     Active Substance: CYCLOPHOSPHAMIDE
     Indication: ATYPICAL TERATOID/RHABDOID TUMOUR OF CNS
     Dosage: UNK UNK, CYCLE
     Dates: start: 20140101, end: 20140101
  3. CARBOPLATIN. [Suspect]
     Active Substance: CARBOPLATIN
     Indication: ATYPICAL TERATOID/RHABDOID TUMOUR OF CNS
     Dosage: 3 UNK, CYCLE
     Route: 065
     Dates: start: 2014, end: 2014
  4. IFOSFAMIDE. [Suspect]
     Active Substance: IFOSFAMIDE
     Indication: ATYPICAL TERATOID/RHABDOID TUMOUR OF CNS
     Dosage: 3 UNK, CYCLE
     Route: 065
     Dates: start: 2014, end: 2014
  5. VINCRISTIN [Concomitant]
     Active Substance: VINCRISTINE
     Indication: ATYPICAL TERATOID/RHABDOID TUMOUR OF CNS
     Dosage: UNK UNK, CYCLE
     Dates: start: 20140101, end: 20140101
  6. DOXORUBICIN [Concomitant]
     Active Substance: DOXORUBICIN
     Indication: ATYPICAL TERATOID/RHABDOID TUMOUR OF CNS
     Dosage: 1 UNK, CYCLE
     Dates: start: 20140101, end: 20140101

REACTIONS (6)
  - Product use in unapproved indication [Unknown]
  - Packed red blood cell transfusion [Unknown]
  - Anaemia [Recovered/Resolved]
  - Thrombocytopenia [Recovered/Resolved]
  - Febrile neutropenia [Recovered/Resolved]
  - Platelet transfusion [Unknown]

NARRATIVE: CASE EVENT DATE: 20140101
